FAERS Safety Report 10009473 (Version 1)
Quarter: 2014Q1

REPORT INFORMATION
  Report Type: Spontaneous
  Country: US (occurrence: US)
  Receive Date: 20140312
  Receipt Date: 20140312
  Transmission Date: 20141002
  Serious: No
  Sender: FDA-Public Use
  Company Number: US-INCYTE CORPORATION-2012IN001710

PATIENT
  Age: 70 Year
  Sex: Male

DRUGS (8)
  1. JAKAFI [Suspect]
     Indication: MYELOFIBROSIS
     Dosage: 25 MG, BID
     Route: 048
     Dates: start: 20120901
  2. CENTRUM SILVER [Concomitant]
  3. ASPIRIN [Concomitant]
  4. COQ10 [Concomitant]
  5. FISH OIL [Concomitant]
  6. PROBIOTICA [Concomitant]
  7. PRILOSEC [Concomitant]
  8. ALLOPURINOL [Concomitant]

REACTIONS (1)
  - Skin lesion [Not Recovered/Not Resolved]
